FAERS Safety Report 14614647 (Version 5)
Quarter: 2018Q3

REPORT INFORMATION
  Report Type: Spontaneous
  Country: FR (occurrence: FR)
  Receive Date: 20180308
  Receipt Date: 20180727
  Transmission Date: 20181010
  Serious: Yes (Other)
  Sender: FDA-Public Use
  Company Number: FR-TEVA-2018-FR-868382

PATIENT
  Age: 41 Year
  Sex: Female
  Weight: 65 kg

DRUGS (6)
  1. VITAMIN A                          /00056001/ [Suspect]
     Active Substance: RETINOL
     Indication: PRODUCT USED FOR UNKNOWN INDICATION
     Dosage: 1 DOSAGE FORMS DAILY;
     Route: 047
     Dates: start: 20180215, end: 20180301
  2. DACUDOSES [Suspect]
     Active Substance: BORIC ACID\SODIUM BORATE
     Indication: PRODUCT USED FOR UNKNOWN INDICATION
     Dosage: 1 DOSAGE FORMS DAILY; 4 DROP (1/12 MILLILITRE), ONCE DAILY
     Route: 047
     Dates: start: 20180215, end: 20180301
  3. SODIUM CHLORIDE. [Concomitant]
     Active Substance: SODIUM CHLORIDE
     Indication: PRODUCT USED FOR UNKNOWN INDICATION
     Dosage: 250 ML, TOTAL IN EACH EYE
     Route: 047
     Dates: start: 20180215, end: 20180215
  4. VITABACT [Suspect]
     Active Substance: PICLOXYDINE DIHYDROCHLORIDE
     Indication: PRODUCT USED FOR UNKNOWN INDICATION
     Dosage: 4 GTT DAILY; 4 DROPS, ONCE DAILY [4 DROP (1/12 MILLILITRE) EVERY 1 DAY]
     Route: 047
     Dates: start: 20180215, end: 20180301
  5. LEVACT [Suspect]
     Active Substance: BENDAMUSTINE HYDROCHLORIDE
     Indication: PRODUCT USED FOR UNKNOWN INDICATION
     Route: 042
     Dates: start: 20180215
  6. SODIUM HYALURONATE [Suspect]
     Active Substance: HYALURONATE SODIUM
     Indication: PRODUCT USED FOR UNKNOWN INDICATION
     Dosage: 4 GTT DAILY; 4 DROPS, ONCE DAILY [4 DROP (1/12 MILLILITRE) EVERY 1 DAY]
     Route: 047
     Dates: start: 20180215, end: 20180301

REACTIONS (10)
  - Vision blurred [Unknown]
  - Nausea [Unknown]
  - Foreign body sensation in eyes [Unknown]
  - Eye pain [Unknown]
  - Ocular discomfort [Unknown]
  - Dizziness [Unknown]
  - Eye inflammation [Unknown]
  - Occupational exposure to product [Unknown]
  - Product preparation error [Unknown]
  - Vomiting [Unknown]

NARRATIVE: CASE EVENT DATE: 20180215
